FAERS Safety Report 4285238-9 (Version None)
Quarter: 2004Q1

REPORT INFORMATION
  Report Type: 
  Country: None (occurrence: None)
  Receive Date: 20040203
  Receipt Date: 20040203
  Transmission Date: 20041129
  Serious: Yes (Life-Threatening, Hospitalization)
  Sender: FDA-Public Use
  Company Number: None

PATIENT
  Sex: Male

DRUGS (8)
  1. ASPIRIN [Suspect]
     Indication: CEREBROVASCULAR ACCIDENT
     Dosage: 325 MG QD PO
     Route: 048
  2. PLAVIX [Suspect]
     Indication: CEREBROVASCULAR ACCIDENT
     Dosage: 75 MG QD PO
     Route: 048
  3. DONEPEZIL [Concomitant]
  4. MILK OF MAGNESIA TAB [Concomitant]
  5. MULTI-VITAMIN [Concomitant]
  6. CLOPIDOGREL BISULFATE [Concomitant]
  7. SORBITOL [Concomitant]
  8. LATANOPROST [Concomitant]

REACTIONS (4)
  - FALL [None]
  - GASTROINTESTINAL HAEMORRHAGE [None]
  - HIATUS HERNIA [None]
  - MEMORY IMPAIRMENT [None]
